FAERS Safety Report 8172061-8 (Version None)
Quarter: 2012Q1

REPORT INFORMATION
  Report Type: 
  Country: None (occurrence: None)
  Receive Date: 20120228
  Receipt Date: 20120222
  Transmission Date: 20120608
  Serious: Yes (Hospitalization, Other)
  Sender: FDA-Public Use
  Company Number: US-AMGEN-USASP2011047385

PATIENT
  Age: 66 Year
  Sex: Female

DRUGS (6)
  1. ARANESP [Suspect]
     Indication: PRODUCT USED FOR UNKNOWN INDICATION
     Dosage: UNK
  2. ALLOPURINOL [Concomitant]
  3. FOSAMAX [Concomitant]
  4. EXJADE [Concomitant]
     Dosage: 1000 MG, QD
  5. PROLIA [Suspect]
     Indication: PRODUCT USED FOR UNKNOWN INDICATION
     Dosage: 60 MG, UNK
     Dates: start: 20110308
  6. LEVOTHYROXINE SODIUM [Concomitant]
     Indication: HYPOTHYROIDISM

REACTIONS (11)
  - ANAEMIA [None]
  - DRUG ERUPTION [None]
  - CARDIAC FAILURE CONGESTIVE [None]
  - DYSPNOEA [None]
  - ARTHRALGIA [None]
  - SEPSIS [None]
  - IRON OVERLOAD [None]
  - CHILLS [None]
  - DIZZINESS [None]
  - RENAL FAILURE [None]
  - PYREXIA [None]
